FAERS Safety Report 9637964 (Version 3)
Quarter: 2014Q1

REPORT INFORMATION
  Report Type: Report from Study
  Country: DK (occurrence: DK)
  Receive Date: 20131022
  Receipt Date: 20140122
  Transmission Date: 20141002
  Serious: Yes (Death)
  Sender: FDA-Public Use
  Company Number: DK-ROCHE-1292422

PATIENT
  Age: 21 Year
  Sex: Female

DRUGS (1)
  1. ALTEPLASE [Suspect]
     Indication: CEREBRAL VENOUS THROMBOSIS
     Dosage: A BOLUS OF 2-3 MG INJECTED INTO THE MICROCATHETER; DURING THE NEXT 24 H, 1 MG PER H WAS INJECTED CON
     Route: 065

REACTIONS (1)
  - Cerebral infarction [Fatal]
